FAERS Safety Report 6071519-5 (Version None)
Quarter: 2009Q1

REPORT INFORMATION
  Report Type: 
  Country: None (occurrence: None)
  Receive Date: 20090209
  Receipt Date: 20090209
  Transmission Date: 20090719
  Serious: Yes (Death, Hospitalization, Disabling)
  Sender: FDA-Public Use
  Company Number: None

PATIENT
  Sex: Female
  Weight: 54.4316 kg

DRUGS (3)
  1. RISPERDAL [Suspect]
     Indication: SEDATIVE THERAPY
     Dosage: SEVERAL TIMES HOSPITAL
     Dates: start: 20080101
  2. ABILIFY [Suspect]
     Dosage: DAILY NURSING HO
     Dates: start: 20080101
  3. HALDOL [Concomitant]

REACTIONS (6)
  - GAIT DISTURBANCE [None]
  - MEDICATION ERROR [None]
  - PNEUMONIA ASPIRATION [None]
  - POSTURE ABNORMAL [None]
  - SPEECH DISORDER [None]
  - UNEVALUABLE EVENT [None]
